FAERS Safety Report 19362155 (Version 4)
Quarter: 2021Q2

REPORT INFORMATION
  Report Type: Spontaneous
  Country: US (occurrence: US)
  Receive Date: 20210601
  Receipt Date: 20210621
  Transmission Date: 20210717
  Serious: Yes (Other)
  Sender: FDA-Public Use
  Company Number: US-PFIZER INC-2021559017

PATIENT
  Age: 74 Year
  Sex: Female

DRUGS (5)
  1. TOZINAMERAN. [Suspect]
     Active Substance: TOZINAMERAN
     Dosage: 1ST DOSE, SINGLE
  2. TOZINAMERAN. [Suspect]
     Active Substance: TOZINAMERAN
     Indication: COVID-19 IMMUNISATION
     Dosage: 2ND DOSE, SINGLE
  3. PREMARIN [Suspect]
     Active Substance: ESTROGENS, CONJUGATED
     Dosage: UNK
  4. PREMPRO [Suspect]
     Active Substance: ESTROGENS, CONJUGATED\MEDROXYPROGESTERONE ACETATE
     Dosage: 2.5 MG
  5. CELEBREX [Suspect]
     Active Substance: CELECOXIB
     Dosage: UNK

REACTIONS (7)
  - Drug ineffective [Recovered/Resolved]
  - COVID-19 [Recovered/Resolved]
  - Weight decreased [Recovered/Resolved]
  - Skin disorder [Recovered/Resolved]
  - Dysgeusia [Recovered/Resolved]
  - Decreased appetite [Recovered/Resolved]
  - Chills [Recovered/Resolved]
